FAERS Safety Report 10084589 (Version 2)
Quarter: 2014Q2

REPORT INFORMATION
  Report Type: Spontaneous
  Country: DE (occurrence: DE)
  Receive Date: 20140417
  Receipt Date: 20140417
  Transmission Date: 20141212
  Serious: Yes (Hospitalization)
  Sender: FDA-Public Use
  Company Number: DE-BRISTOL-MYERS SQUIBB COMPANY-20152427

PATIENT
  Age: 81 Year
  Sex: Male
  Weight: 81 kg

DRUGS (1)
  1. SPRYCEL (CML) TABS 70 MG [Suspect]
     Indication: CHRONIC MYELOID LEUKAEMIA
     Dosage: APR-2013, DOSE REDUCED AND INTER.RESTARTED IN JUN13:80MG,JAN14:DOSE REDUCED
     Route: 048
     Dates: start: 201202

REACTIONS (2)
  - Hypothyroidism [Recovering/Resolving]
  - Eczema [Recovering/Resolving]
